FAERS Safety Report 6464965-9 (Version None)
Quarter: 2009Q4

REPORT INFORMATION
  Report Type: 
  Country: None (occurrence: None)
  Receive Date: 20091201
  Receipt Date: 20091102
  Transmission Date: 20100525
  Serious: No
  Sender: FDA-Public Use
  Company Number: US-BAYER-200916490BCC

PATIENT
  Age: 22 Year
  Sex: Male
  Weight: 73 kg

DRUGS (3)
  1. ALEVE [Suspect]
     Indication: TOOTHACHE
     Dosage: UNIT DOSE: 220 MG
     Route: 048
     Dates: start: 20090901, end: 20091001
  2. ALEVE [Suspect]
     Dosage: UNIT DOSE: 220 MG
     Route: 048
     Dates: start: 20091001
  3. HUMULIN R [Concomitant]
     Route: 065

REACTIONS (1)
  - ABDOMINAL PAIN UPPER [None]
